FAERS Safety Report 16942511 (Version 2)
Quarter: 2020Q1

REPORT INFORMATION
  Report Type: Spontaneous
  Country: GB (occurrence: GB)
  Receive Date: 20191021
  Receipt Date: 20200203
  Transmission Date: 20200409
  Serious: Yes (Other)
  Sender: FDA-Public Use
  Company Number: GB-MYLANLABS-2019M1098798

PATIENT
  Age: 55 Year
  Sex: Female
  Weight: 44.45 kg

DRUGS (2)
  1. DOXYCYCLINE. [Suspect]
     Active Substance: DOXYCYCLINE
     Dosage: 200 MILLIGRAM
     Route: 048
     Dates: start: 20190822
  2. DOXYCYCLINE. [Suspect]
     Active Substance: DOXYCYCLINE
     Indication: LYME DISEASE
     Dosage: 200 MILLIGRAM
     Route: 048
     Dates: start: 20190822, end: 20190912

REACTIONS (7)
  - Palpitations [Recovered/Resolved]
  - Asthenia [Not Recovered/Not Resolved]
  - Depression [Recovering/Resolving]
  - Nausea [Recovering/Resolving]
  - Pruritus genital [Recovering/Resolving]
  - Fatigue [Not Recovered/Not Resolved]
  - Genital discomfort [Recovering/Resolving]
